FAERS Safety Report 8301007-4 (Version None)
Quarter: 2012Q2

REPORT INFORMATION
  Report Type: 
  Country: None (occurrence: None)
  Receive Date: 20120420
  Receipt Date: 20120413
  Transmission Date: 20120825
  Serious: Yes (Death)
  Sender: FDA-Public Use
  Company Number: MX-UCBSA-055358

PATIENT
  Age: 83 Year
  Sex: Female
  Weight: 75 kg

DRUGS (1)
  1. NUBRENZA [Suspect]
     Indication: PARKINSON'S DISEASE
     Route: 062
     Dates: start: 20111214, end: 20120411

REACTIONS (2)
  - MULTI-ORGAN FAILURE [None]
  - MYOCARDIAL INFARCTION [None]
